FAERS Safety Report 16895597 (Version 1)
Quarter: 2019Q4

REPORT INFORMATION
  Report Type: Spontaneous
  Country: DE (occurrence: DE)
  Receive Date: 20191008
  Receipt Date: 20191008
  Transmission Date: 20200122
  Serious: Yes (Congenital Anomaly, Other)
  Sender: FDA-Public Use
  Company Number: DE-ASTRAZENECA-2019SF39942

PATIENT
  Age: 1 Day
  Sex: Female
  Weight: 2.9 kg

DRUGS (8)
  1. NOVOPULMON [Suspect]
     Active Substance: BUDESONIDE
     Indication: ASTHMA
     Dosage: 1.6 [MG/D (BIS 0.8 MG/D) ]
     Route: 064
     Dates: start: 20180815, end: 20190409
  2. L-THYROX HEXAL 25 [Concomitant]
     Indication: HYPOTHYROIDISM
     Dosage: 37.5 [MCG/D (1.5 TABL.) ]37.5UG/INHAL DAILY
     Route: 064
     Dates: start: 20180619, end: 20190409
  3. AERODUR [Concomitant]
     Indication: ASTHMA
     Dosage: IF NEEDED
     Route: 064
  4. SEREVENT DISKUS [Concomitant]
     Active Substance: SALMETEROL XINAFOATE
     Indication: ASTHMA
     Dosage: 100 [MCG/D (BIS 50 ???G/D, NACH BEDARF) ]
     Route: 064
     Dates: start: 20181004, end: 20190409
  5. VIANI [Concomitant]
     Active Substance: FLUTICASONE PROPIONATE\SALMETEROL XINAFOATE
     Indication: ASTHMA
     Route: 064
     Dates: start: 20180619, end: 20180808
  6. ALVESCO [Suspect]
     Active Substance: CICLESONIDE
     Indication: ASTHMA
     Dosage: 160 [MCG/D (1X/D, ABENDS) ]160UG/INHAL DAILY
     Route: 064
     Dates: start: 20180619, end: 20180814
  7. FAMENITA [Concomitant]
     Active Substance: PROGESTERONE
     Indication: PROPHYLAXIS OF ABORTION
     Dosage: 100 [MG/D ]
     Route: 064
     Dates: start: 20180619, end: 20180810
  8. SALBUHEXAL [Concomitant]
     Active Substance: ALBUTEROL
     Indication: ASTHMA
     Dosage: IF NEEDED.
     Route: 064

REACTIONS (5)
  - Foetal exposure during pregnancy [Unknown]
  - Small for dates baby [Recovering/Resolving]
  - Ventricular septal defect [Not Recovered/Not Resolved]
  - Atrial septal defect [Recovering/Resolving]
  - Patent ductus arteriosus [Recovering/Resolving]

NARRATIVE: CASE EVENT DATE: 20190409
